FAERS Safety Report 7060399-7 (Version None)
Quarter: 2010Q4

REPORT INFORMATION
  Report Type: 
  Country: None (occurrence: None)
  Receive Date: 20101025
  Receipt Date: 20100902
  Transmission Date: 20110411
  Serious: No
  Sender: FDA-Public Use
  Company Number: US-BAYER-201021070BCC

PATIENT
  Age: 16 Year
  Sex: Female
  Weight: 59 kg

DRUGS (3)
  1. ALEVE [Suspect]
     Indication: TOOTHACHE
     Dosage: TOTAL DAILY DOSE: 220 MG  UNIT DOSE: 220 MG
     Route: 048
     Dates: start: 20100902
  2. RISPERIDONE [Concomitant]
     Dosage: TOTAL DAILY DOSE: 10 MG  UNIT DOSE: 5 MG
     Route: 065
  3. SERTRALINE [Concomitant]
     Route: 065

REACTIONS (2)
  - FATIGUE [None]
  - SOMNOLENCE [None]
